FAERS Safety Report 4593797-1 (Version None)
Quarter: 2005Q1

REPORT INFORMATION
  Report Type: 
  Country: None (occurrence: None)
  Receive Date: 20050301
  Receipt Date: 20050221
  Transmission Date: 20050727
  Serious: Yes (Other)
  Sender: FDA-Public Use
  Company Number: PHFR2005GB00987

PATIENT
  Sex: Female

DRUGS (2)
  1. CYCLOSPORINE [Suspect]
     Indication: COLITIS ULCERATIVE
  2. STEROIDS NOS [Suspect]

REACTIONS (2)
  - RETINOPATHY [None]
  - VISUAL ACUITY REDUCED [None]
